FAERS Safety Report 11700454 (Version 1)
Quarter: 2015Q4

REPORT INFORMATION
  Report Type: Spontaneous
  Country: US (occurrence: None)
  Receive Date: 20151104
  Receipt Date: 20151104
  Transmission Date: 20160304
  Serious: Yes (Life-Threatening)
  Sender: FDA-Public Use
  Company Number: None

PATIENT
  Age: 38 Year
  Sex: Female
  Weight: 77.11 kg

DRUGS (1)
  1. AUVI-Q [Suspect]
     Active Substance: EPINEPHRINE
     Indication: ANAPHYLACTIC REACTION
     Dosage: AUTOINJECT GIVEN INTO/UNDER THE SKIN
     Dates: start: 20150701, end: 20150822

REACTIONS (7)
  - Drug effect decreased [None]
  - Fatigue [None]
  - Hunger [None]
  - Anaphylactic reaction [None]
  - Condition aggravated [None]
  - Feeling cold [None]
  - Energy increased [None]

NARRATIVE: CASE EVENT DATE: 20150822
